FAERS Safety Report 10463704 (Version 1)
Quarter: 2014Q3

REPORT INFORMATION
  Report Type: Spontaneous
  Country: US (occurrence: CA)
  Receive Date: 20140919
  Receipt Date: 20140919
  Transmission Date: 20150326
  Serious: Yes (Hospitalization)
  Sender: FDA-Public Use
  Company Number: 2014SP005320

PATIENT
  Age: 63 Year
  Sex: Female

DRUGS (20)
  1. ACETYLSALICYLIC ACID [Concomitant]
     Active Substance: ASPIRIN
  2. BISOPROLOL [Concomitant]
     Active Substance: BISOPROLOL
  3. CITALOPRAM [Concomitant]
     Active Substance: CITALOPRAM HYDROBROMIDE
  4. DIOVAN [Concomitant]
     Active Substance: VALSARTAN
  5. METHOTREXATE [Suspect]
     Active Substance: METHOTREXATE
     Indication: PRODUCT USED FOR UNKNOWN INDICATION
  6. ORENCIA [Suspect]
     Active Substance: ABATACEPT
     Indication: PRODUCT USED FOR UNKNOWN INDICATION
     Route: 042
  7. FOLIC ACID. [Concomitant]
     Active Substance: FOLIC ACID
  8. ESOMEPRAZOLE [Concomitant]
     Active Substance: ESOMEPRAZOLE
  9. TOCOPHEROL [Concomitant]
     Active Substance: TOCOPHEROL
  10. CALCIUM CHLORIDE. [Concomitant]
     Active Substance: CALCIUM CHLORIDE
  11. FOSAMAX [Concomitant]
     Active Substance: ALENDRONATE SODIUM
  12. ATIVAN [Concomitant]
     Active Substance: LORAZEPAM
  13. PANTOPRAZOLE [Concomitant]
     Active Substance: PANTOPRAZOLE SODIUM
  14. VALSARTAN. [Concomitant]
     Active Substance: VALSARTAN
  15. CELEBREX [Concomitant]
     Active Substance: CELECOXIB
  16. RISEDRONATE SODIUM. [Concomitant]
     Active Substance: RISEDRONATE SODIUM
  17. CHLOROQUINE [Concomitant]
     Active Substance: CHLOROQUINE\CHLOROQUINE PHOSPHATE
  18. ORENCIA [Suspect]
     Active Substance: ABATACEPT
     Indication: PRODUCT USED FOR UNKNOWN INDICATION
     Route: 042
  19. ROSUVASTATIN [Concomitant]
     Active Substance: ROSUVASTATIN
  20. ERGOCALCIFEROL. [Concomitant]
     Active Substance: ERGOCALCIFEROL

REACTIONS (15)
  - Cardiac disorder [Unknown]
  - Rheumatoid arthritis [Unknown]
  - Pyelonephritis [Unknown]
  - Trigeminal neuralgia [Unknown]
  - Oral pain [Unknown]
  - Influenza [Unknown]
  - Oropharyngeal pain [Unknown]
  - Anaemia [Unknown]
  - Skin disorder [Unknown]
  - Foot deformity [Unknown]
  - Productive cough [Unknown]
  - Myocardial infarction [Unknown]
  - Oedema peripheral [Unknown]
  - Pneumonia [Unknown]
  - Erythema [Unknown]
